FAERS Safety Report 12718976 (Version 1)
Quarter: 2016Q3

REPORT INFORMATION
  Report Type: Report from Study
  Country: CN (occurrence: CN)
  Receive Date: 20160906
  Receipt Date: 20160906
  Transmission Date: 20161109
  Serious: Yes (Hospitalization, Other)
  Sender: FDA-Public Use
  Company Number: CN-BAXTER-2016BAX044835

PATIENT
  Sex: Female

DRUGS (2)
  1. PERITONEAL DIALYSIS SOLUTION (LACTATE- G2.5%) [Suspect]
     Active Substance: CALCIUM CHLORIDE\DEXTROSE\MAGNESIUM CHLORIDE\SODIUM CHLORIDE\SODIUM LACTATE
     Indication: END STAGE RENAL DISEASE
     Route: 033
     Dates: start: 20140326
  2. PERITONEAL DIALYSIS SOLUTION (LACTATE- G1.5%) [Suspect]
     Active Substance: CALCIUM CHLORIDE\DEXTROSE\MAGNESIUM CHLORIDE\SODIUM CHLORIDE\SODIUM LACTATE
     Indication: END STAGE RENAL DISEASE
     Route: 033
     Dates: start: 20140326

REACTIONS (3)
  - Lung infection [Unknown]
  - Nasopharyngitis [Unknown]
  - Abdominal infection [Not Recovered/Not Resolved]
